FAERS Safety Report 4615637-4 (Version None)
Quarter: 2005Q1

REPORT INFORMATION
  Report Type: 
  Country: None (occurrence: None)
  Receive Date: 20050322
  Receipt Date: 20050315
  Transmission Date: 20050727
  Serious: Yes (Other)
  Sender: FDA-Public Use
  Company Number: US-MERCK-0503USA03255

PATIENT
  Sex: Female

DRUGS (1)
  1. VIOXX [Suspect]
     Route: 048
     Dates: start: 20020401, end: 20031226

REACTIONS (8)
  - AMNESIA [None]
  - ANXIETY [None]
  - BALANCE DISORDER [None]
  - BEDRIDDEN [None]
  - CEREBRAL INFARCTION [None]
  - DEPRESSION [None]
  - DYSGRAPHIA [None]
  - SENSORY LOSS [None]
